FAERS Safety Report 6088043-6 (Version None)
Quarter: 2009Q1

REPORT INFORMATION
  Report Type: 
  Country: None (occurrence: None)
  Receive Date: 20090218
  Receipt Date: 20090204
  Transmission Date: 20090719
  Serious: Yes (Other)
  Sender: FDA-Public Use
  Company Number: 2009S1002092

PATIENT
  Age: 3 Month
  Sex: Female

DRUGS (1)
  1. KLOMIPRAMIN  (CLOMIPRAMINE HYDROCHLORIDE) [Suspect]
     Indication: DRUG USE FOR UNKNOWN INDICATION
     Dosage: 25 MG; 3 TIMES A DAY; INTRAUTERINE
     Route: 015

REACTIONS (3)
  - HYPOGLYCAEMIA [None]
  - MATERNAL DRUGS AFFECTING FOETUS [None]
  - WITHDRAWAL SYNDROME [None]
